FAERS Safety Report 24460151 (Version 1)
Quarter: 2024Q4

REPORT INFORMATION
  Report Type: Spontaneous
  Country: KR (occurrence: KR)
  Receive Date: 20241018
  Receipt Date: 20241018
  Transmission Date: 20250115
  Serious: No
  Sender: ROCHE
  Company Number: KR-ROCHE-3552351

PATIENT
  Age: 53 Year
  Sex: Male

DRUGS (1)
  1. MABTHERA [Suspect]
     Active Substance: RITUXIMAB
     Indication: Product used for unknown indication
     Route: 065

REACTIONS (3)
  - Oropharyngeal pain [Unknown]
  - Swelling [Unknown]
  - Testicular swelling [Unknown]

NARRATIVE: CASE EVENT DATE: 20221025
